FAERS Safety Report 7016829-X (Version None)
Quarter: 2010Q3

REPORT INFORMATION
  Report Type: 
  Country: None (occurrence: None)
  Receive Date: 20100927
  Receipt Date: 20100923
  Transmission Date: 20110219
  Serious: Yes (Hospitalization)
  Sender: FDA-Public Use
  Company Number: FR-WYE-G06716710

PATIENT
  Age: 46 Year
  Sex: Female

DRUGS (3)
  1. RHINADVIL [Suspect]
     Route: 048
     Dates: start: 20100624, end: 20100624
  2. IRBESARTAN [Concomitant]
     Indication: HYPERTENSION
     Dosage: UNKNOWN
     Route: 048
     Dates: start: 20091201
  3. DOLIPRANE [Suspect]
     Route: 048
     Dates: start: 20100624, end: 20100624

REACTIONS (6)
  - BLOOD PRESSURE DECREASED [None]
  - HYPERHIDROSIS [None]
  - MALAISE [None]
  - PRURITUS [None]
  - TONGUE OEDEMA [None]
  - URTICARIA [None]
